FAERS Safety Report 4639187-4 (Version None)
Quarter: 2005Q2

REPORT INFORMATION
  Report Type: 
  Country: None (occurrence: None)
  Receive Date: 20050418
  Receipt Date: 20050407
  Transmission Date: 20051028
  Serious: Yes (Death, Hospitalization, Other)
  Sender: FDA-Public Use
  Company Number: 2003-03-3017

PATIENT
  Age: 42 Year
  Sex: Male

DRUGS (10)
  1. TEMODAL [Suspect]
     Indication: ANAPLASTIC ASTROCYTOMA
     Dosage: 200 MG QD* ORAL
     Route: 048
     Dates: start: 20030412, end: 20030430
  2. TEMODAL [Suspect]
     Indication: ANAPLASTIC ASTROCYTOMA
     Dosage: 200 MG QD* ORAL
     Route: 048
     Dates: start: 20030314
  3. ZANTAC [Concomitant]
  4. CIPRAMIL [Concomitant]
  5. INSULATARD [Concomitant]
  6. ACTRAPID HUMAN [Concomitant]
  7. MEDROL [Concomitant]
  8. ROCEPHIN [Concomitant]
  9. DIAMOX [Concomitant]
  10. CIPRAMIL [Concomitant]

REACTIONS (16)
  - ABASIA [None]
  - COMA [None]
  - ESCHERICHIA SEPSIS [None]
  - FAECAL INCONTINENCE [None]
  - FALL [None]
  - FEELING ABNORMAL [None]
  - GENERAL PHYSICAL CONDITION ABNORMAL [None]
  - GLIOMA [None]
  - HYDROCEPHALUS [None]
  - LYMPHOPENIA [None]
  - MALIGNANT NEOPLASM PROGRESSION [None]
  - MONOPARESIS [None]
  - NEUROLOGICAL SYMPTOM [None]
  - OXYGEN SATURATION DECREASED [None]
  - URINARY INCONTINENCE [None]
  - URINARY TRACT INFECTION [None]
